FAERS Safety Report 6172401-5 (Version None)
Quarter: 2009Q2

REPORT INFORMATION
  Report Type: 
  Country: None (occurrence: None)
  Receive Date: 20090429
  Receipt Date: 20090421
  Transmission Date: 20091009
  Serious: Yes (Hospitalization)
  Sender: FDA-Public Use
  Company Number: PHHY2009JP13018

PATIENT
  Age: 3 Year
  Sex: Female
  Weight: 10 kg

DRUGS (1)
  1. ZADITEN [Suspect]
     Indication: RHINITIS
     Dosage: 4.5 MG
     Route: 048
     Dates: start: 20090402

REACTIONS (3)
  - ACCIDENTAL OVERDOSE [None]
  - HYPERSOMNIA [None]
  - VOMITING [None]
